FAERS Safety Report 10827122 (Version 1)
Quarter: 2015Q1

REPORT INFORMATION
  Report Type: Report from Study
  Country: US (occurrence: US)
  Receive Date: 20150219
  Receipt Date: 20150219
  Transmission Date: 20150721
  Serious: Yes (Other)
  Sender: FDA-Public Use
  Company Number: US-ABBVIE-14K-163-1319888-00

PATIENT
  Sex: Female

DRUGS (1)
  1. HUMIRA [Suspect]
     Active Substance: ADALIMUMAB
     Indication: CROHN^S DISEASE
     Route: 065
     Dates: start: 2008, end: 2014

REACTIONS (5)
  - Pharyngeal ulceration [Unknown]
  - Rectal ulcer [Unknown]
  - Rash [Unknown]
  - Large intestine perforation [Unknown]
  - Arthritis [Unknown]

NARRATIVE: CASE EVENT DATE: 2014
